FAERS Safety Report 19405319 (Version 1)
Quarter: 2021Q2

REPORT INFORMATION
  Report Type: Spontaneous
  Country: GB (occurrence: GB)
  Receive Date: 20210611
  Receipt Date: 20210611
  Transmission Date: 20210717
  Serious: Yes (Other)
  Sender: FDA-Public Use
  Company Number: GB-MACLEODS PHARMACEUTICALS US LTD-MAC2021031418

PATIENT

DRUGS (1)
  1. ACYCLOVIR. [Suspect]
     Active Substance: ACYCLOVIR
     Indication: PNEUMONIA VIRAL
     Dosage: 800 MILLIGRAM, BID, 27 MG/KG/D
     Route: 048

REACTIONS (1)
  - Neurotoxicity [Recovering/Resolving]
